FAERS Safety Report 21469947 (Version 1)
Quarter: 2022Q4

REPORT INFORMATION
  Report Type: Spontaneous
  Country: LB (occurrence: None)
  Receive Date: 20221018
  Receipt Date: 20221018
  Transmission Date: 20230112
  Serious: Yes (Other)
  Sender: FDA-Public Use
  Company Number: LB-ROCHE-3197643

PATIENT
  Sex: Female
  Weight: 70 kg

DRUGS (1)
  1. AVASTIN [Suspect]
     Active Substance: BEVACIZUMAB
     Indication: Diabetic retinal oedema
     Route: 050
     Dates: start: 20220910, end: 20220910

REACTIONS (9)
  - Product use in unapproved indication [Unknown]
  - Product use issue [Unknown]
  - Off label use [Unknown]
  - Eye pain [Unknown]
  - Vision blurred [Unknown]
  - Muscle twitching [Unknown]
  - Eyelid ptosis [Unknown]
  - Photophobia [Unknown]
  - Visual impairment [Unknown]
